FAERS Safety Report 11266278 (Version 1)
Quarter: 2015Q3

REPORT INFORMATION
  Report Type: Spontaneous
  Country: US (occurrence: US)
  Receive Date: 20150713
  Receipt Date: 20150713
  Transmission Date: 20151125
  Serious: Yes (Other)
  Sender: FDA-Public Use
  Company Number: US-MPIJNJ-2013-01380

PATIENT

DRUGS (6)
  1. ONDANSETRON [Concomitant]
     Active Substance: ONDANSETRON
     Indication: PRODUCT USED FOR UNKNOWN INDICATION
     Dosage: 8 MG, UNK
     Route: 042
     Dates: start: 20130124
  2. VELCADE [Suspect]
     Active Substance: BORTEZOMIB
     Indication: PLASMA CELL MYELOMA
     Dosage: UNK UNK, CYCLIC
     Route: 058
     Dates: end: 20130121
  3. VELCADE [Suspect]
     Active Substance: BORTEZOMIB
     Dosage: 2 MG, CYCLIC
     Route: 058
     Dates: start: 20130121
  4. DEXAMETHASONE. [Suspect]
     Active Substance: DEXAMETHASONE
     Indication: PLASMA CELL MYELOMA
     Dosage: 40 MG, UNK
     Route: 048
  5. DARBEPOETIN ALFA [Concomitant]
     Active Substance: DARBEPOETIN ALFA
     Indication: PRODUCT USED FOR UNKNOWN INDICATION
     Dosage: 10 ?G, UNK
     Dates: start: 20130121
  6. CYCLOPHOSPHAMIDE. [Suspect]
     Active Substance: CYCLOPHOSPHAMIDE
     Indication: PLASMA CELL MYELOMA
     Dosage: 1000 MG, UNK
     Route: 065

REACTIONS (5)
  - Neuropathy peripheral [Unknown]
  - Asthenia [Unknown]
  - Blood creatinine increased [Unknown]
  - Muscular weakness [Unknown]
  - Nausea [Unknown]

NARRATIVE: CASE EVENT DATE: 20130124
